FAERS Safety Report 8440370-0 (Version None)
Quarter: 2012Q2

REPORT INFORMATION
  Report Type: 
  Country: None (occurrence: None)
  Receive Date: 20120615
  Receipt Date: 20120613
  Transmission Date: 20120825
  Serious: Yes (Death, Life-Threatening, Hospitalization, Disabling, Other)
  Sender: FDA-Public Use
  Company Number: PH-ROCHE-740082

PATIENT
  Sex: Female
  Weight: 52 kg

DRUGS (10)
  1. ACETAMINOPHEN [Concomitant]
     Dates: start: 20101105, end: 20101122
  2. HERCEPTIN [Suspect]
     Indication: BREAST CANCER
     Dosage: LAST DOSE PRIOR TO SAE : 26 OCT 2010, PERMANENTLY DISCONTINUED ON 16 NOV 2010
     Route: 042
     Dates: start: 20101026, end: 20101116
  3. VITAMIN K TAB [Concomitant]
     Dates: start: 20101107, end: 20101116
  4. FLUCONAZOLE [Concomitant]
     Dates: start: 20101103, end: 20101109
  5. MUCOSTA [Concomitant]
     Dates: start: 20101109, end: 20101111
  6. DOCETAXEL [Suspect]
     Indication: BREAST CANCER
     Dosage: DOSE LEVEL:100 MG/M2; LAST DOSE PRIOR TO SAE 26 OCT 2010, PERMANENTLY DISCONTINUED ON 16 NOV 2010
     Route: 042
     Dates: start: 20101026, end: 20101116
  7. CIPROFLAXACIN [Concomitant]
     Dates: start: 20101026, end: 20101102
  8. OMEPRAZOLE [Concomitant]
     Dates: start: 20101104, end: 20101123
  9. TRANEXAMIC ACID [Concomitant]
     Dates: start: 20101114, end: 20101123
  10. TINZAPARIN [Concomitant]
     Dosage: TDD 10000 UNITS
     Dates: start: 20101105, end: 20101106

REACTIONS (7)
  - GASTROINTESTINAL ULCER [None]
  - CARDIO-RESPIRATORY ARREST [None]
  - DUODENAL ULCER [None]
  - PNEUMONIA [None]
  - NEUTROPENIA [None]
  - HEPATIC FAILURE [None]
  - FEBRILE NEUTROPENIA [None]
